FAERS Safety Report 11503192 (Version 2)
Quarter: 2016Q3

REPORT INFORMATION
  Report Type: Spontaneous
  Country: US (occurrence: US)
  Receive Date: 20150914
  Receipt Date: 20160915
  Transmission Date: 20161109
  Serious: Yes (Other)
  Sender: FDA-Public Use
  Company Number: US-ASTELLAS-2015US031233

PATIENT
  Sex: Male

DRUGS (2)
  1. XTANDI [Suspect]
     Active Substance: ENZALUTAMIDE
     Route: 065
  2. XTANDI [Suspect]
     Active Substance: ENZALUTAMIDE
     Indication: PROSTATE CANCER STAGE IV
     Route: 065
     Dates: start: 20150817

REACTIONS (7)
  - Malignant neoplasm progression [Unknown]
  - Hypoaesthesia [Unknown]
  - Nausea [Unknown]
  - Fatigue [Recovering/Resolving]
  - Back pain [Recovering/Resolving]
  - Diarrhoea [Unknown]
  - Paraesthesia [Unknown]
